FAERS Safety Report 5975590-8 (Version None)
Quarter: 2008Q4

REPORT INFORMATION
  Report Type: 
  Country: None (occurrence: None)
  Receive Date: 20081128
  Receipt Date: 20081117
  Transmission Date: 20090506
  Serious: Yes (Death)
  Sender: FDA-Public Use
  Company Number: A-CH2008-19842

PATIENT
  Age: 79 Year

DRUGS (1)
  1. TRACLEER [Suspect]
     Indication: SKIN ULCER
     Dosage: UNK UNK ORAL
     Route: 048

REACTIONS (1)
  - OEDEMA [None]
